FAERS Safety Report 15950960 (Version 1)
Quarter: 2019Q1

REPORT INFORMATION
  Report Type: Spontaneous
  Country: US (occurrence: US)
  Receive Date: 20190212
  Receipt Date: 20190212
  Transmission Date: 20190417
  Serious: Yes (Hospitalization)
  Sender: FDA-Public Use
  Company Number: US-ACTELION-A-NJ2019-186121

PATIENT
  Age: 56 Year
  Sex: Male

DRUGS (18)
  1. HYDROCODONE BITARTRATE AND ACETAMINOPHEN [Concomitant]
     Active Substance: ACETAMINOPHEN\HYDROCODONE BITARTRATE
  2. IPRATROPIUM W/SALBUTAMOL [Concomitant]
  3. VENTOLIN HFA [Concomitant]
     Active Substance: ALBUTEROL SULFATE
  4. TRACLEER [Suspect]
     Active Substance: BOSENTAN
     Indication: PULMONARY HYPERTENSION
     Dosage: 125 MG, UNK
     Route: 048
  5. METHOCARBAMOL. [Concomitant]
     Active Substance: METHOCARBAMOL
  6. RIFAMPIN. [Concomitant]
     Active Substance: RIFAMPIN
  7. FUROSEMIDE. [Concomitant]
     Active Substance: FUROSEMIDE
  8. SEROQUEL [Concomitant]
     Active Substance: QUETIAPINE FUMARATE
  9. BACLOFEN. [Concomitant]
     Active Substance: BACLOFEN
  10. MELOXICAM. [Concomitant]
     Active Substance: MELOXICAM
  11. SILDENAFIL CITRATE. [Concomitant]
     Active Substance: SILDENAFIL CITRATE
  12. AMIODARONE HCL [Concomitant]
     Active Substance: AMIODARONE HYDROCHLORIDE
  13. GABAPENTIN. [Concomitant]
     Active Substance: GABAPENTIN
  14. MORPHINE SULFATE. [Concomitant]
     Active Substance: MORPHINE SULFATE
  15. LEVOTHYROXINE SODIUM. [Concomitant]
     Active Substance: LEVOTHYROXINE SODIUM
  16. NYSTATIN. [Concomitant]
     Active Substance: NYSTATIN
  17. TYLENOL [Concomitant]
     Active Substance: ACETAMINOPHEN
  18. XARELTO [Concomitant]
     Active Substance: RIVAROXABAN

REACTIONS (2)
  - Product dose omission [Unknown]
  - Cardiac disorder [Recovering/Resolving]
